FAERS Safety Report 20733347 (Version 1)
Quarter: 2022Q2

REPORT INFORMATION
  Report Type: Spontaneous
  Country: TW (occurrence: TW)
  Receive Date: 20220421
  Receipt Date: 20220421
  Transmission Date: 20220721
  Serious: Yes (Other)
  Sender: FDA-Public Use
  Company Number: TW-SUN PHARMACEUTICAL INDUSTRIES LTD-2022RR-334015

PATIENT
  Age: 76 Year
  Sex: Male

DRUGS (1)
  1. DICLOFENAC [Suspect]
     Active Substance: DICLOFENAC
     Indication: Arthralgia
     Dosage: 100 MILLIGRAM, DAILY
     Route: 065

REACTIONS (3)
  - Gastric disorder [Recovered/Resolved]
  - Hyperbilirubinaemia [Unknown]
  - Upper gastrointestinal haemorrhage [Unknown]
